FAERS Safety Report 5426304-1 (Version None)
Quarter: 2007Q3

REPORT INFORMATION
  Report Type: 
  Country: None (occurrence: None)
  Receive Date: 20070827
  Receipt Date: 20070813
  Transmission Date: 20080115
  Serious: Yes (Life-Threatening, Hospitalization)
  Sender: FDA-Public Use
  Company Number: LV-ROCHE-508085

PATIENT
  Age: 38 Year
  Sex: Female

DRUGS (5)
  1. BONIVA [Suspect]
     Route: 048
     Dates: start: 20061202, end: 20070209
  2. PREDNISOLONE [Concomitant]
     Dosage: DRUG: PREDNISOLON, DOSE REPORTED 2 TABLETS X 2
     Dates: start: 19980101
  3. SANDIMMUNE [Concomitant]
     Dosage: DOSE REPORTED: 50 MG X 2
     Dates: start: 19980101
  4. IMURAN [Concomitant]
     Dosage: DOSE REPORTED: 50 MG X 2
     Dates: start: 19980101
  5. ALPHA D3 [Concomitant]
     Dosage: DRUG REPORTED: ALPHA D3 TEVA, DOSE: 0.25 MG X 2
     Dates: start: 20030130

REACTIONS (1)
  - KIDNEY TRANSPLANT REJECTION [None]
